FAERS Safety Report 9379512 (Version 2)
Quarter: 2013Q3

REPORT INFORMATION
  Report Type: Report from Study
  Country: BR (occurrence: BR)
  Receive Date: 20130702
  Receipt Date: 20130724
  Transmission Date: 20140515
  Serious: Yes (Death, Hospitalization)
  Sender: FDA-Public Use
  Company Number: BR-ABBOTT-13P-020-1112647-00

PATIENT
  Age: 62 Year
  Sex: Female
  Weight: 48 kg

DRUGS (3)
  1. HUMIRA [Suspect]
     Indication: CROHN^S DISEASE
     Dosage: DAY 0
     Route: 058
  2. HUMIRA [Suspect]
     Dosage: DAY 14
     Route: 058
  3. HUMIRA [Suspect]
     Route: 058

REACTIONS (2)
  - Crohn^s disease [Fatal]
  - Pneumonia [Fatal]
